FAERS Safety Report 6294419-4 (Version None)
Quarter: 2009Q3

REPORT INFORMATION
  Report Type: 
  Country: None (occurrence: None)
  Receive Date: 20090803
  Receipt Date: 20090720
  Transmission Date: 20100115
  Serious: Yes (Death, Hospitalization)
  Sender: FDA-Public Use
  Company Number: US-ROCHE-645270

PATIENT
  Sex: Male

DRUGS (6)
  1. MYCOPHENOLATE MOFETIL [Suspect]
     Route: 065
     Dates: start: 20070515
  2. MYCOPHENOLATE MOFETIL [Suspect]
     Route: 065
     Dates: end: 20080101
  3. BELATACEPT [Suspect]
     Route: 042
     Dates: start: 20070515, end: 20071127
  4. PREDNISOLONE [Suspect]
     Indication: DRUG USE FOR UNKNOWN INDICATION
     Route: 065
     Dates: start: 20070517, end: 20090623
  5. SIMULECT [Suspect]
     Route: 065
     Dates: start: 20070515, end: 20070519
  6. SIROLIMUS [Concomitant]
     Dates: start: 20080327, end: 20090615

REACTIONS (5)
  - B-CELL LYMPHOMA [None]
  - COGNITIVE DISORDER [None]
  - HYPOGLYCAEMIA [None]
  - KIDNEY TRANSPLANT REJECTION [None]
  - MALNUTRITION [None]
